FAERS Safety Report 16550853 (Version 2)
Quarter: 2019Q3

REPORT INFORMATION
  Report Type: Spontaneous
  Country: US (occurrence: US)
  Receive Date: 20190710
  Receipt Date: 20190723
  Transmission Date: 20191004
  Serious: Yes (Hospitalization, Other)
  Sender: FDA-Public Use
  Company Number: US-ABBVIE-19K-163-2846101-00

PATIENT
  Sex: Male

DRUGS (1)
  1. ANDROGEL [Suspect]
     Active Substance: TESTOSTERONE
     Indication: FATIGUE
     Route: 061
     Dates: start: 201301, end: 201408

REACTIONS (9)
  - Cardiac septal defect [Unknown]
  - Sleep apnoea syndrome [Unknown]
  - Off label use [Recovered/Resolved]
  - Aortic aneurysm [Unknown]
  - Chest pain [Recovered/Resolved]
  - Dyspnoea [Recovered/Resolved]
  - Myocardial infarction [Unknown]
  - Chest pain [Recovered/Resolved]
  - Dyspnoea [Recovered/Resolved]

NARRATIVE: CASE EVENT DATE: 2014
